FAERS Safety Report 8458895-0 (Version None)
Quarter: 2012Q2

REPORT INFORMATION
  Report Type: 
  Country: None (occurrence: None)
  Receive Date: 20120622
  Receipt Date: 20120618
  Transmission Date: 20120825
  Serious: Yes (Hospitalization)
  Sender: FDA-Public Use
  Company Number: US-BAYER-2011-075780

PATIENT
  Age: 34 Year
  Sex: Female
  Weight: 62 kg

DRUGS (11)
  1. OMEPRAZOLE [Concomitant]
     Dosage: 20 MG,
  2. AMBIEN [Concomitant]
     Dosage: 12.5 MG, UNK
  3. GABAPENTIN [Concomitant]
     Dosage: 300 MG, UNK
  4. OXYCODONE HCL AND ACETAMINOPHEN [Concomitant]
     Dosage: 5-325MG
  5. YASMIN [Suspect]
     Indication: ORAL CONTRACEPTION
     Dosage: UNK
     Route: 048
     Dates: start: 20010901, end: 20080430
  6. AMOXICILLIN [Concomitant]
     Dosage: 500 MG, UNK
  7. ALPRAZOLAM [Concomitant]
     Dosage: 0.25 MG, UNK
  8. LAMOTRIGINE [Concomitant]
     Dosage: 200 MG, UNK
  9. HYDROCODONE BITARTRATE AND ACETAMINOPHEN [Concomitant]
     Dosage: 7.5-325
  10. LITHIUM CARBONATE [Concomitant]
     Dosage: 300 MG, UNK
  11. HYDROCODONE W/IBUPROFEN [Concomitant]
     Dosage: 7.5-200

REACTIONS (4)
  - CHOLECYSTITIS CHRONIC [None]
  - INCISION SITE INFECTION [None]
  - PAIN [None]
  - CHOLECYSTECTOMY [None]
